FAERS Safety Report 6578033-9 (Version None)
Quarter: 2010Q1

REPORT INFORMATION
  Report Type: 
  Country: None (occurrence: None)
  Receive Date: 20100211
  Receipt Date: 20100204
  Transmission Date: 20100710
  Serious: Yes (Other)
  Sender: FDA-Public Use
  Company Number: US-RB-017932-09

PATIENT
  Sex: Male

DRUGS (4)
  1. SUBOXONE [Suspect]
     Dosage: PATIENT TOOK VARIOUS INCREASING DOSES OF SUBOXONE.
     Route: 060
     Dates: start: 20090702, end: 20090706
  2. SUBOXONE [Suspect]
     Route: 060
     Dates: start: 20090707
  3. SYNTHROID [Concomitant]
     Indication: HYPOTHYROIDISM
     Route: 048
     Dates: start: 20090501
  4. ALCOHOL [Suspect]
     Indication: DRUG USE FOR UNKNOWN INDICATION
     Dosage: PATIENT WAS DRINKING A LARGE AMOUNT.
     Route: 048

REACTIONS (1)
  - SUICIDAL IDEATION [None]
